FAERS Safety Report 20584901 (Version 1)
Quarter: 2022Q1

REPORT INFORMATION
  Report Type: Report from Study
  Country: US (occurrence: US)
  Receive Date: 20220311
  Receipt Date: 20220311
  Transmission Date: 20220424
  Serious: No
  Sender: FDA-Public Use
  Company Number: US-NOVARTISTESTPH-NVSC2022US057497

PATIENT
  Age: 69 Year
  Sex: Male

DRUGS (1)
  1. ENTRESTO [Suspect]
     Active Substance: SACUBITRIL\VALSARTAN
     Indication: Chronic left ventricular failure
     Dosage: 50 MG, BID
     Route: 048
     Dates: start: 20220309

REACTIONS (3)
  - Wrong technique in product usage process [Unknown]
  - Product prescribing error [Unknown]
  - Off label use [Unknown]

NARRATIVE: CASE EVENT DATE: 20220309
